FAERS Safety Report 7112326-1 (Version None)
Quarter: 2010Q4

REPORT INFORMATION
  Report Type: 
  Country: None (occurrence: None)
  Receive Date: 20101119
  Receipt Date: 20100722
  Transmission Date: 20110411
  Serious: No
  Sender: FDA-Public Use
  Company Number: A0871888A

PATIENT
  Age: 59 Year
  Sex: Male

DRUGS (2)
  1. AVODART [Suspect]
     Indication: ILL-DEFINED DISORDER
     Dosage: 1CAPL PER DAY
     Route: 048
     Dates: start: 20100501
  2. ANTIBIOTIC [Concomitant]

REACTIONS (5)
  - CHROMATURIA [None]
  - PRURITUS [None]
  - RASH [None]
  - RASH MACULAR [None]
  - URTICARIA [None]
